FAERS Safety Report 19065163 (Version 1)
Quarter: 2021Q1

REPORT INFORMATION
  Report Type: Spontaneous
  Country: TR (occurrence: TR)
  Receive Date: 20210327
  Receipt Date: 20210327
  Transmission Date: 20210420
  Serious: Yes (Hospitalization, Other)
  Sender: FDA-Public Use
  Company Number: TR-ABBVIE-21K-161-3776714-00

PATIENT
  Age: 71 Year
  Sex: Male

DRUGS (3)
  1. HUMIRA [Suspect]
     Active Substance: ADALIMUMAB
     Indication: INFLAMMATORY BOWEL DISEASE
     Route: 058
     Dates: start: 202012, end: 202012
  2. PENTASA [Concomitant]
     Active Substance: MESALAMINE
     Indication: PRODUCT USED FOR UNKNOWN INDICATION
  3. IMURAN [Concomitant]
     Active Substance: AZATHIOPRINE
     Indication: PRODUCT USED FOR UNKNOWN INDICATION

REACTIONS (3)
  - COVID-19 [Recovered/Resolved]
  - Hypoxia [Recovered/Resolved]
  - Pneumonia [Recovered/Resolved]

NARRATIVE: CASE EVENT DATE: 202012
